FAERS Safety Report 9596583 (Version 2)
Quarter: 2013Q4

REPORT INFORMATION
  Report Type: Spontaneous
  Country: US (occurrence: US)
  Receive Date: 20131004
  Receipt Date: 20131007
  Transmission Date: 20140711
  Serious: Yes (Death)
  Sender: FDA-Public Use
  Company Number: US-FRI-1000049562

PATIENT
  Age: 90 Year
  Sex: Male

DRUGS (13)
  1. TUDORZA PRESSAIR [Suspect]
     Dosage: 800 MCG
     Route: 055
     Dates: end: 20130930
  2. LASIX [Concomitant]
     Dosage: 20 MG
  3. COUMADIN [Concomitant]
  4. HYOSCYAMINE SULFATE [Concomitant]
     Dosage: 0.25 MG
  5. NEXIUM [Concomitant]
     Dosage: 10 MG
  6. NTG [Concomitant]
     Dosage: 0.4 MG PRN
  7. VITAMIN B12 [Concomitant]
     Dosage: MONTHLY
  8. METOPROLOL [Concomitant]
     Dosage: 50 MG (FREQUENCY UNKNOWN)
  9. TERAZOSIN [Concomitant]
     Dosage: 4 MG
  10. ASA [Concomitant]
     Dosage: 81 MG
  11. MEGESTROL [Concomitant]
     Dosage: 120 MG
  12. SPIRIVA [Concomitant]
     Dosage: 18 MCG
  13. DUONEB [Concomitant]
     Dosage: 0.5/3 MG BID

REACTIONS (1)
  - Aspiration [Fatal]
